FAERS Safety Report 7610058-4 (Version None)
Quarter: 2011Q3

REPORT INFORMATION
  Report Type: 
  Country: None (occurrence: None)
  Receive Date: 20110715
  Receipt Date: 20110630
  Transmission Date: 20111222
  Serious: Yes (Hospitalization, Other)
  Sender: FDA-Public Use
  Company Number: DE-AMGEN-DEUSP2011029854

PATIENT
  Age: 36 Year
  Sex: Male

DRUGS (3)
  1. ENBREL [Suspect]
     Indication: RHEUMATOID ARTHRITIS
     Dosage: 50 MG, ONCE WEEKLY
     Route: 058
     Dates: start: 20110301
  2. ARAVA [Concomitant]
     Dosage: UNK
  3. PREDNISOLONE [Concomitant]
     Indication: RHEUMATOID ARTHRITIS
     Dosage: 2.5 MG, 2X/DAY
     Route: 048

REACTIONS (3)
  - NAUSEA [None]
  - SUPRAVENTRICULAR EXTRASYSTOLES [None]
  - GRAND MAL CONVULSION [None]
